FAERS Safety Report 7952139-1 (Version None)
Quarter: 2011Q4

REPORT INFORMATION
  Report Type: 
  Country: None (occurrence: None)
  Receive Date: 20111201
  Receipt Date: 20111116
  Transmission Date: 20120403
  Serious: Yes (Hospitalization, Other)
  Sender: FDA-Public Use
  Company Number: PHHY2011FR101322

PATIENT
  Sex: Female
  Weight: 72 kg

DRUGS (4)
  1. ESCITALOPRAM [Concomitant]
     Indication: DEPRESSION
     Dosage: 15 MG, DAILY
     Route: 048
  2. LERCANIDIPINE [Concomitant]
     Indication: HYPERTENSION
  3. TASIGNA [Suspect]
     Indication: CHRONIC MYELOID LEUKAEMIA
     Dosage: 800 MG, DAILY
     Route: 048
     Dates: start: 20111109, end: 20111115
  4. LASIX [Concomitant]
     Indication: HYPERTENSION
     Dosage: 20 MG, DAILY

REACTIONS (10)
  - C-REACTIVE PROTEIN INCREASED [None]
  - NEUTROPHIL COUNT INCREASED [None]
  - HYPERLIPIDAEMIA [None]
  - CHILLS [None]
  - MYALGIA [None]
  - MEAN PLATELET VOLUME INCREASED [None]
  - DYSPNOEA [None]
  - BLOOD GLUCOSE INCREASED [None]
  - TREMOR [None]
  - COUGH [None]
